FAERS Safety Report 24209445 (Version 1)
Quarter: 2024Q3

REPORT INFORMATION
  Report Type: Spontaneous
  Country: CA (occurrence: CA)
  Receive Date: 20240814
  Receipt Date: 20240814
  Transmission Date: 20241016
  Serious: Yes (Hospitalization, Other)
  Sender: RANBAXY
  Company Number: CA-SUN PHARMACEUTICAL INDUSTRIES LTD-2024R1-462246

PATIENT
  Age: 22 Day
  Sex: Male
  Weight: 3.65 kg

DRUGS (5)
  1. FLECAINIDE [Suspect]
     Active Substance: FLECAINIDE
     Indication: Supraventricular tachycardia
     Dosage: 98 MILLIGRAM/SQ. METER (10MG)
     Route: 048
  2. FLECAINIDE [Suspect]
     Active Substance: FLECAINIDE
     Dosage: 10 MILLIGRAM TWICE PER DAY
     Route: 048
  3. PROPRANOLOL [Suspect]
     Active Substance: PROPRANOLOL HYDROCHLORIDE
     Indication: Supraventricular tachycardia
     Dosage: 2 MILLIGRAM/KILOGRAM EVERY 6 H
     Route: 065
  4. PROPRANOLOL [Suspect]
     Active Substance: PROPRANOLOL HYDROCHLORIDE
     Dosage: 2.4 MILLIGRAM/KILOGRAM EVERY 6 H
     Route: 065
  5. PROPRANOLOL [Suspect]
     Active Substance: PROPRANOLOL HYDROCHLORIDE
     Dosage: 2 MILLIGRAM FOUR TIMES A DAY
     Route: 065

REACTIONS (3)
  - Neonatal toxicity [Unknown]
  - Electrocardiogram QRS complex prolonged [Unknown]
  - Drug level increased [Unknown]
